FAERS Safety Report 9878069 (Version 1)
Quarter: 2014Q1

REPORT INFORMATION
  Report Type: Spontaneous
  Country: US (occurrence: None)
  Receive Date: 20140204
  Receipt Date: 20140204
  Transmission Date: 20141002
  Serious: Yes (Hospitalization, Other)
  Sender: FDA-Public Use
  Company Number: 2013-US-001456

PATIENT
  Age: 42 Year
  Sex: Female

DRUGS (1)
  1. XYREM (SODIUM OXYBATE) ORAL SOLUTION, 500MG/ML [Suspect]
     Indication: SLEEP DISORDER
     Route: 048
     Dates: start: 20090511, end: 2009

REACTIONS (6)
  - Menorrhagia [None]
  - Weight decreased [None]
  - Influenza [None]
  - Accidental overdose [None]
  - Vomiting [None]
  - Diarrhoea [None]
